FAERS Safety Report 15867205 (Version 1)
Quarter: 2019Q1

REPORT INFORMATION
  Report Type: Report from Study
  Country: BR (occurrence: BR)
  Receive Date: 20190125
  Receipt Date: 20190125
  Transmission Date: 20190417
  Serious: Yes (Life-Threatening, Hospitalization, Other)
  Sender: FDA-Public Use
  Company Number: PHHY2016BR169840

PATIENT
  Age: 64 Year
  Sex: Female
  Weight: 74 kg

DRUGS (4)
  1. ACLASTA [Suspect]
     Active Substance: ZOLEDRONIC ACID
     Dosage: 1 DF (5 MG/100 ML), Q12MO
     Route: 042
     Dates: start: 2016
  2. ACLASTA [Suspect]
     Active Substance: ZOLEDRONIC ACID
     Indication: OSTEOPOROSIS
     Dosage: 1 DF (5 MG/100 ML), Q12MO
     Route: 042
     Dates: start: 20151112
  3. ACLASTA [Suspect]
     Active Substance: ZOLEDRONIC ACID
     Dosage: 1 DF (5 MG/30 ML), Q12MO
     Route: 042
     Dates: start: 20180124
  4. CALCIUM [Concomitant]
     Active Substance: CALCIUM
     Indication: OSTEOPOROSIS
     Route: 065

REACTIONS (22)
  - Tongue disorder [Unknown]
  - Spinal fracture [Recovering/Resolving]
  - Memory impairment [Not Recovered/Not Resolved]
  - Nervousness [Unknown]
  - Incorrect product administration duration [Not Recovered/Not Resolved]
  - Osteopenia [Unknown]
  - Mobility decreased [Unknown]
  - Coordination abnormal [Not Recovered/Not Resolved]
  - Body height increased [Not Recovered/Not Resolved]
  - Product prescribing error [Not Recovered/Not Resolved]
  - Psychotic disorder [Unknown]
  - Apparent death [Unknown]
  - Fatigue [Not Recovered/Not Resolved]
  - Pain [Recovered/Resolved]
  - Osteoarthritis [Unknown]
  - Bipolar disorder [Not Recovered/Not Resolved]
  - Spinal pain [Unknown]
  - Logorrhoea [Unknown]
  - Limb discomfort [Unknown]
  - Malaise [Unknown]
  - Weight decreased [Unknown]
  - Product preparation issue [Not Recovered/Not Resolved]

NARRATIVE: CASE EVENT DATE: 20171120
